FAERS Safety Report 4764206-4 (Version None)
Quarter: 2005Q3

REPORT INFORMATION
  Report Type: 
  Country: None (occurrence: None)
  Receive Date: 20050906
  Receipt Date: 20050617
  Transmission Date: 20060218
  Serious: No
  Sender: FDA-Public Use
  Company Number: 2005-BP-10383BP

PATIENT
  Age: 77 Year
  Sex: Female

DRUGS (7)
  1. SPIRIVA [Suspect]
     Indication: EMPHYSEMA
     Dosage: 18 MCG (18 MCG, QD) IH
     Route: 055
     Dates: start: 20050518, end: 20050617
  2. COREG [Concomitant]
  3. SYNTHROID [Concomitant]
  4. ASPIRIN [Concomitant]
  5. PROVERA [Concomitant]
  6. ESTRACE [Concomitant]
  7. ACIPHEX [Concomitant]

REACTIONS (1)
  - VISION BLURRED [None]
